FAERS Safety Report 5632249-4 (Version None)
Quarter: 2008Q1

REPORT INFORMATION
  Report Type: 
  Country: None (occurrence: None)
  Receive Date: 20080212
  Receipt Date: 20080201
  Transmission Date: 20080703
  Serious: Yes (Death)
  Sender: FDA-Public Use
  Company Number: 2008-00392

PATIENT
  Age: 61 Year
  Sex: Male
  Weight: 43 kg

DRUGS (1)
  1. VELCADE [Suspect]
     Indication: MULTIPLE MYELOMA
     Dosage: 1.30 MG/M2, INTRAVENOUS
     Route: 042
     Dates: start: 20080119, end: 20080129

REACTIONS (2)
  - DRUG INEFFECTIVE [None]
  - NEOPLASM PROGRESSION [None]
